FAERS Safety Report 5811019-8 (Version None)
Quarter: 2008Q3

REPORT INFORMATION
  Report Type: 
  Country: None (occurrence: None)
  Receive Date: 20080710
  Receipt Date: 20080701
  Transmission Date: 20090109
  Serious: Yes (Congenital Anomaly)
  Sender: FDA-Public Use
  Company Number: L08-MEX-02300-04

PATIENT
  Sex: Male
  Weight: 2.5 kg

DRUGS (6)
  1. CARBAMAZEPINE [Suspect]
     Indication: GRAND MAL CONVULSION
     Dosage: 800 MG QD TRANSPLACENTAL
     Route: 064
  2. PHENYTOIN [Suspect]
     Indication: GRAND MAL CONVULSION
     Dosage: 300 MG QD TRANSPLACENTAL
     Route: 064
  3. VALPROIC ACID [Suspect]
     Indication: GRAND MAL CONVULSION
     Dosage: 15 QD TRANSPLACENTAL
     Route: 064
  4. PHENOBARBITAL TAB [Suspect]
     Indication: GRAND MAL CONVULSION
     Dosage: 100 MG QD TRANSPLACENTAL
     Route: 064
  5. MULTI-VITAMINS [Concomitant]
  6. FOLIC ACID [Concomitant]

REACTIONS (4)
  - CLEFT LIP [None]
  - MATERNAL DRUGS AFFECTING FOETUS [None]
  - NEURAL TUBE DEFECT [None]
  - VENTRICULAR SEPTAL DEFECT [None]
